FAERS Safety Report 5702071-9 (Version None)
Quarter: 2008Q2

REPORT INFORMATION
  Report Type: 
  Country: None (occurrence: None)
  Receive Date: 20080411
  Receipt Date: 20070531
  Transmission Date: 20081010
  Serious: No
  Sender: FDA-Public Use
  Company Number: US-ABBOTT-07P-163-0371143-00

PATIENT
  Sex: Female
  Weight: 72.64 kg

DRUGS (6)
  1. DEPAKOTE [Suspect]
     Indication: AGITATION
     Route: 048
     Dates: start: 20070514
  2. RISPERIDONE [Concomitant]
     Indication: DRUG USE FOR UNKNOWN INDICATION
     Route: 048
  3. WARFARIN SODIUM [Concomitant]
     Indication: EMBOLISM
     Route: 048
  4. MULTI-VITAMIN [Concomitant]
     Indication: DRUG USE FOR UNKNOWN INDICATION
     Route: 048
  5. IRON [Concomitant]
     Indication: DRUG USE FOR UNKNOWN INDICATION
     Route: 048
  6. SERETIDE [Concomitant]
     Indication: ASTHMA
     Route: 055

REACTIONS (13)
  - ABNORMAL DREAMS [None]
  - AGITATION [None]
  - DEPRESSED MOOD [None]
  - DEPRESSION [None]
  - GAIT DISTURBANCE [None]
  - HALLUCINATION [None]
  - HEADACHE [None]
  - MANIA [None]
  - MUSCLE SPASMS [None]
  - OEDEMA PERIPHERAL [None]
  - PAIN IN EXTREMITY [None]
  - TREMOR [None]
  - VISUAL DISTURBANCE [None]
